FAERS Safety Report 15415310 (Version 1)
Quarter: 2018Q3

REPORT INFORMATION
  Report Type: Spontaneous
  Country: US (occurrence: US)
  Receive Date: 20180921
  Receipt Date: 20180921
  Transmission Date: 20181010
  Serious: No
  Sender: FDA-Public Use
  Company Number: US-009507513-1808USA009669

PATIENT
  Sex: Female

DRUGS (1)
  1. DIFICID [Suspect]
     Active Substance: FIDAXOMICIN
     Dosage: 200 MG, BID FOR 4 DAYS
     Route: 048
     Dates: start: 20180418

REACTIONS (5)
  - No adverse event [Unknown]
  - Circumstance or information capable of leading to medication error [Unknown]
  - Poor quality drug administered [Unknown]
  - Drug dispensing error [Unknown]
  - Product physical issue [Unknown]
